FAERS Safety Report 16989640 (Version 1)
Quarter: 2019Q4

REPORT INFORMATION
  Report Type: Spontaneous
  Country: US (occurrence: US)
  Receive Date: 20190919
  Receipt Date: 20190919
  Transmission Date: 20200122
  Serious: Yes (Hospitalization)
  Sender: FDA-Public Use
  Company Number: None

PATIENT
  Sex: Female

DRUGS (1)
  1. ANAGRELIDE HYDROCHLORIDE 0.5MG TEVA PHARMACEUTICALS USA [Suspect]
     Active Substance: ANAGRELIDE HYDROCHLORIDE
     Indication: ESSENTIAL THROMBOCYTHAEMIA
     Dosage: ?          OTHER DOSE:0.5MG;?
     Route: 048
     Dates: start: 201511

REACTIONS (2)
  - Blood sodium abnormal [None]
  - Unevaluable event [None]
